FAERS Safety Report 6754871-4 (Version None)
Quarter: 2010Q2

REPORT INFORMATION
  Report Type: 
  Country: None (occurrence: None)
  Receive Date: 20100524
  Receipt Date: 20100204
  Transmission Date: 20101027
  Serious: No
  Sender: FDA-Public Use
  Company Number: 006294

PATIENT
  Age: 35 Year
  Sex: Female
  Weight: 51.7101 kg

DRUGS (1)
  1. CIMZIA [Suspect]
     Indication: CROHN'S DISEASE
     Dosage: MONTHLY SUBCUTANEOUS
     Route: 058
     Dates: start: 20090501

REACTIONS (1)
  - WEIGHT DECREASED [None]
